FAERS Safety Report 5386976-7 (Version None)
Quarter: 2007Q3

REPORT INFORMATION
  Report Type: 
  Country: None (occurrence: None)
  Receive Date: 20070713
  Receipt Date: 20070702
  Transmission Date: 20080115
  Serious: Yes (Other)
  Sender: FDA-Public Use
  Company Number: US-PFIZER INC-2007055250

PATIENT
  Sex: Female
  Weight: 120.7 kg

DRUGS (22)
  1. CHANTIX [Suspect]
     Indication: EX-SMOKER
  2. TETRACYCLINE [Suspect]
     Indication: EAR INFECTION
  3. DALMANE [Suspect]
     Indication: INSOMNIA
     Dates: start: 20070101, end: 20070101
  4. RESPAIRE-SR-120 [Concomitant]
  5. VALTREX [Concomitant]
  6. OXYCONTIN [Concomitant]
  7. EFFEXOR [Concomitant]
  8. TOPAMAX [Concomitant]
  9. MOMETASONE FUROATE [Concomitant]
  10. ASTELIN [Concomitant]
  11. FLONASE [Concomitant]
  12. METOPROLOL SUCCINATE [Concomitant]
  13. PREMARIN [Concomitant]
  14. ALLEGRA [Concomitant]
  15. PROVIGIL [Concomitant]
  16. CLARITIN [Concomitant]
  17. SOMA [Concomitant]
  18. DETROL LA [Concomitant]
  19. COMBIVENT [Concomitant]
     Route: 055
  20. LIDODERM [Concomitant]
  21. VICOPROFEN [Concomitant]
  22. VALIUM [Concomitant]

REACTIONS (8)
  - APLASTIC ANAEMIA [None]
  - BLINDNESS [None]
  - DRUG TOXICITY [None]
  - HYPERSENSITIVITY [None]
  - PYREXIA [None]
  - STEVENS-JOHNSON SYNDROME [None]
  - WEIGHT DECREASED [None]
  - WHITE BLOOD CELL DISORDER [None]
